FAERS Safety Report 6181084-X (Version None)
Quarter: 2009Q2

REPORT INFORMATION
  Report Type: 
  Country: None (occurrence: None)
  Receive Date: 20090504
  Receipt Date: 20090504
  Transmission Date: 20091009
  Serious: No
  Sender: FDA-Public Use
  Company Number: None

PATIENT
  Age: 49 Year
  Sex: Male
  Weight: 90.7194 kg

DRUGS (1)
  1. CLOZAPINE [Suspect]
     Dosage: 300 MG DAILY PO
     Route: 048

REACTIONS (1)
  - CONVULSION [None]
